FAERS Safety Report 13153604 (Version 1)
Quarter: 2017Q1

REPORT INFORMATION
  Report Type: Spontaneous
  Country: US (occurrence: US)
  Receive Date: 20170122
  Receipt Date: 20170122
  Transmission Date: 20170428
  Serious: Yes (Other)
  Sender: FDA-Public Use
  Company Number: None

PATIENT
  Age: 65 Year
  Sex: Male
  Weight: 144 kg

DRUGS (21)
  1. MULTIVITAMIN CENTRUM SILVER FOR MEN [Concomitant]
  2. GLUCOSAMINE AND CHONDROITIN SULFATE [Concomitant]
  3. OMEGA 3 FISH OIL [Concomitant]
     Active Substance: FISH OIL\OMEGA-3 FATTY ACIDS
  4. OMEGA-3S [Concomitant]
  5. FLAXSEED [Concomitant]
     Active Substance: FLAX SEED
  6. 5HTP [Concomitant]
  7. TESTIM [Concomitant]
     Active Substance: TESTOSTERONE
  8. UBINQUINOL (COQ10) [Concomitant]
  9. FOSINOPRIL [Concomitant]
     Active Substance: FOSINOPRIL
  10. DHA [Concomitant]
     Active Substance: DIETARY SUPPLEMENT
  11. METFORMIN [Concomitant]
     Active Substance: METFORMIN HYDROCHLORIDE
  12. GLUCOSAMINE SULFATE [Concomitant]
     Active Substance: GLUCOSAMINE SULFATE
  13. VITAMIN C [Concomitant]
     Active Substance: ASCORBIC ACID
  14. CETIRIZINE HYDROCHLORIDE. [Concomitant]
     Active Substance: CETIRIZINE HYDROCHLORIDE
  15. MELATONIN [Concomitant]
     Active Substance: MELATONIN
  16. DULOXETINE DR [Suspect]
     Active Substance: DULOXETINE
     Indication: STRESS
     Dosage: ?          QUANTITY:30 CAPSULE(S);?
     Route: 048
  17. DULOXETINE DR [Suspect]
     Active Substance: DULOXETINE
     Indication: PAIN
     Dosage: ?          QUANTITY:30 CAPSULE(S);?
     Route: 048
  18. AMLODIPINE BESYLATE. [Concomitant]
     Active Substance: AMLODIPINE BESYLATE
  19. EPA [Concomitant]
  20. CPAP [Concomitant]
     Active Substance: DEVICE
  21. CHONDROITIN SULFATE [Concomitant]
     Active Substance: SODIUM CHONDROITIN SULFATE

REACTIONS (11)
  - Sensory loss [None]
  - Fear [None]
  - Loss of libido [None]
  - Panic attack [None]
  - Drug withdrawal syndrome [None]
  - Grief reaction [None]
  - Erectile dysfunction [None]
  - Depression [None]
  - Insomnia [None]
  - Anger [None]
  - Personal relationship issue [None]

NARRATIVE: CASE EVENT DATE: 20170116
